FAERS Safety Report 10357718 (Version 1)
Quarter: 2014Q3

REPORT INFORMATION
  Report Type: Other
  Country: GB (occurrence: GB)
  Receive Date: 20140801
  Receipt Date: 20140801
  Transmission Date: 20150326
  Serious: Yes (Other)
  Sender: FDA-Public Use
  Company Number: GB-MYLAN-2014S1017464

PATIENT

DRUGS (3)
  1. IBUPROFEN. [Interacting]
     Active Substance: IBUPROFEN
     Dosage: UNK
  2. ANTIHISTAMINES [Interacting]
     Active Substance: ANTIHISTAMINES NOS
     Dosage: UNK
  3. DONEPEZIL [Suspect]
     Active Substance: DONEPEZIL
     Dosage: 10 MG,QD
     Route: 048

REACTIONS (2)
  - Malaise [Recovered/Resolved]
  - Drug interaction [Recovered/Resolved]
